FAERS Safety Report 13760066 (Version 1)
Quarter: 2017Q3

REPORT INFORMATION
  Report Type: Spontaneous
  Country: US (occurrence: US)
  Receive Date: 20170717
  Receipt Date: 20170717
  Transmission Date: 20171127
  Serious: Yes (Other)
  Sender: FDA-Public Use
  Company Number: US-BAXTER-2017BAX025457

PATIENT
  Age: 76 Year
  Sex: Female

DRUGS (1)
  1. DIANEAL LOW CALCIUM PERITONEAL DIALYSIS SOLUTION WITH DEXTROSE [Suspect]
     Active Substance: CALCIUM CHLORIDE\DEXTROSE\MAGNESIUM CHLORIDE\SODIUM CHLORIDE\SODIUM LACTATE
     Indication: PERITONEAL DIALYSIS
     Route: 033

REACTIONS (5)
  - Arthritis [Unknown]
  - Back injury [Recovering/Resolving]
  - Muscle strain [Recovering/Resolving]
  - Spinal column injury [Recovering/Resolving]
  - Musculoskeletal injury [Recovering/Resolving]

NARRATIVE: CASE EVENT DATE: 20170504
